FAERS Safety Report 18107194 (Version 1)
Quarter: 2020Q3

REPORT INFORMATION
  Report Type: Spontaneous
  Country: US (occurrence: US)
  Receive Date: 20200803
  Receipt Date: 20200803
  Transmission Date: 20201103
  Serious: Yes (Death, Other)
  Sender: FDA-Public Use
  Company Number: US-PURDUE-USA-2020-0160263

PATIENT
  Age: 35 Year
  Sex: Male

DRUGS (5)
  1. ALCOHOL. [Suspect]
     Active Substance: ALCOHOL
     Indication: PRODUCT USED FOR UNKNOWN INDICATION
     Route: 065
  2. OXYCONTIN [Suspect]
     Active Substance: OXYCODONE HYDROCHLORIDE
     Indication: BACK PAIN
     Dosage: UNK
     Route: 048
     Dates: end: 20170713
  3. NALOXONE [Suspect]
     Active Substance: NALOXONE
     Indication: PRODUCT USED FOR UNKNOWN INDICATION
     Route: 065
  4. FENTANYL CITRATE. [Suspect]
     Active Substance: FENTANYL CITRATE
     Indication: PRODUCT USED FOR UNKNOWN INDICATION
     Route: 065
  5. CAFFEINE. [Suspect]
     Active Substance: CAFFEINE
     Indication: PRODUCT USED FOR UNKNOWN INDICATION
     Route: 065

REACTIONS (14)
  - Pneumoconiosis [Fatal]
  - Cardiac arrest [Fatal]
  - Bronchial secretion retention [Fatal]
  - Toxicity to various agents [Fatal]
  - Hepatic steatosis [Fatal]
  - Gastrointestinal haemorrhage [Fatal]
  - Drug dependence [None]
  - Overdose [Fatal]
  - Gastric ulcer [Fatal]
  - Bronchitis chronic [Fatal]
  - Ocular icterus [Fatal]
  - Necrotising oesophagitis [Fatal]
  - Cholelithiasis [Fatal]
  - Drug interaction [Unknown]

NARRATIVE: CASE EVENT DATE: 20170713
